FAERS Safety Report 9739524 (Version 3)
Quarter: 2014Q1

REPORT INFORMATION
  Report Type: Spontaneous
  Country: GB (occurrence: GB)
  Receive Date: 20131209
  Receipt Date: 20140325
  Transmission Date: 20141002
  Serious: Yes (Death, Other)
  Sender: FDA-Public Use
  Company Number: GB-ACCORD-020517

PATIENT
  Age: 65 Year
  Sex: Female
  Weight: 68 kg

DRUGS (6)
  1. ANASTROZOLE [Suspect]
     Indication: BREAST CANCER
     Route: 048
     Dates: start: 20130726
  2. IBUPROFEN [Concomitant]
     Dates: start: 20130822, end: 20130919
  3. AMLODIPINE [Concomitant]
     Indication: HYPERTENSION
     Dosage: PREVIOUSLY TOOK FROM 21-MAR-2013
     Route: 048
     Dates: start: 20130708, end: 20131017
  4. INDAPAMIDE/INDAPAMIDE HEMIHYDRATE [Concomitant]
     Indication: HYPERTENSION
     Dosage: PREVIOUSLY TOOK 25 MG ORALLY FROM 08-JUL-2013.
     Route: 048
     Dates: start: 20130801, end: 20130829
  5. RAMIPRIL [Concomitant]
     Indication: HYPERTENSION
     Route: 048
     Dates: start: 20130821, end: 20130918
  6. ATENOLOL/ATENOLOL HYDROCHLORIDE [Concomitant]
     Indication: HYPERTENSION
     Dosage: PREVIOUSLY TOOK IN 2002.
     Route: 048
     Dates: start: 20130708, end: 20131017

REACTIONS (2)
  - Hair growth abnormal [Unknown]
  - Ischaemic stroke [Fatal]
